FAERS Safety Report 18765494 (Version 1)
Quarter: 2021Q1

REPORT INFORMATION
  Report Type: Spontaneous
  Country: DE (occurrence: DE)
  Receive Date: 20210120
  Receipt Date: 20210120
  Transmission Date: 20210419
  Serious: Yes (Death, Life-Threatening, Hospitalization)
  Sender: FDA-Public Use
  Company Number: DE-BAUSCH-BL-2021-000765

PATIENT
  Age: 79 Year
  Sex: Male

DRUGS (5)
  1. AZATHIOPRINE. [Suspect]
     Active Substance: AZATHIOPRINE
     Indication: AORTITIS
     Route: 065
  2. 6?MERCAPTOPURINE [Suspect]
     Active Substance: MERCAPTOPURINE
     Indication: AORTITIS
     Route: 065
  3. CYCLOPHOSPHAMIDE. [Suspect]
     Active Substance: CYCLOPHOSPHAMIDE
     Indication: AORTITIS
     Route: 042
  4. MITOMYCIN. [Suspect]
     Active Substance: MITOMYCIN
     Indication: BLADDER TRANSITIONAL CELL CARCINOMA
     Route: 065
     Dates: end: 2019
  5. 5?FLUOROURACIL [Suspect]
     Active Substance: FLUOROURACIL
     Indication: BLADDER TRANSITIONAL CELL CARCINOMA
     Route: 065
     Dates: end: 2019

REACTIONS (2)
  - Pulmonary alveolar haemorrhage [Unknown]
  - COVID-19 [Fatal]

NARRATIVE: CASE EVENT DATE: 202002
